FAERS Safety Report 4555603-0 (Version None)
Quarter: 2005Q1

REPORT INFORMATION
  Report Type: 
  Country: None (occurrence: None)
  Receive Date: 20050118
  Receipt Date: 20041202
  Transmission Date: 20050727
  Serious: Yes (Hospitalization)
  Sender: FDA-Public Use
  Company Number: F03200400121

PATIENT
  Age: 51 Year
  Sex: Male

DRUGS (4)
  1. UROXATRAL [Suspect]
     Dosage: 10 MG OD ORAL
     Route: 048
     Dates: start: 20041011, end: 20041103
  2. ATORVASTATIN [Concomitant]
  3. VALSARTAN [Concomitant]
  4. GLIPIZIDE [Concomitant]

REACTIONS (2)
  - BACK PAIN [None]
  - CHEST PAIN [None]
